FAERS Safety Report 21818572 (Version 2)
Quarter: 2023Q1

REPORT INFORMATION
  Report Type: Spontaneous
  Country: JP (occurrence: JP)
  Receive Date: 20230104
  Receipt Date: 20230124
  Transmission Date: 20230418
  Serious: Yes (Other)
  Sender: FDA-Public Use
  Company Number: JP-JNJFOC-20221262970

PATIENT

DRUGS (1)
  1. ACUVUE THERAVISION WITH KETOTIFEN [Suspect]
     Active Substance: KETOTIFEN FUMARATE
     Indication: Eye pruritus
     Route: 047
     Dates: start: 20221210

REACTIONS (1)
  - Optic neuritis [Unknown]
